FAERS Safety Report 7475977-0 (Version None)
Quarter: 2011Q2

REPORT INFORMATION
  Report Type: 
  Country: None (occurrence: None)
  Receive Date: 20110504
  Receipt Date: 20110418
  Transmission Date: 20111010
  Serious: Yes (Hospitalization, Other)
  Sender: FDA-Public Use
  Company Number: FK201100792

PATIENT
  Age: 48 Year
  Sex: Male

DRUGS (5)
  1. THYMOGLOBULIN [Suspect]
     Indication: IMMUNOSUPPRESSANT DRUG THERAPY
  2. CYCLOSPORINE [Suspect]
     Indication: IMMUNOSUPPRESSANT DRUG THERAPY
     Dosage: 375 MG, PER DAY
  3. METHYLPREDNISOLONE SODIUM SUCCINATE [Suspect]
     Indication: IMMUNOSUPPRESSANT DRUG THERAPY
  4. MYCOPHENOLATE MOFETIL [Suspect]
     Indication: IMMUNOSUPPRESSANT DRUG THERAPY
     Dosage: 2.25 GM, PER DAY
  5. PREDNISOLONE [Suspect]
     Indication: IMMUNOSUPPRESSANT DRUG THERAPY
     Dosage: 1 MG/KG, PER DAY ; 0.2 MG/KG, PER DAY ; 0.1 MG/KG, PER DAY

REACTIONS (4)
  - CYTOMEGALOVIRUS INFECTION [None]
  - AORTIC DISSECTION [None]
  - DRUG RESISTANCE [None]
  - ABDOMINAL TENDERNESS [None]
